FAERS Safety Report 4979222-7 (Version None)
Quarter: 2006Q2

REPORT INFORMATION
  Report Type: 
  Country: None (occurrence: None)
  Receive Date: 20060418
  Receipt Date: 20060412
  Transmission Date: 20061013
  Serious: Yes (Other)
  Sender: FDA-Public Use
  Company Number: 2006-03-1758

PATIENT
  Age: 59 Year
  Sex: Male
  Weight: 86 kg

DRUGS (3)
  1. TEMODAL [Suspect]
     Indication: GLIOBLASTOMA
     Dosage: 400 MG QD ORAL
     Route: 048
     Dates: start: 20051101
  2. TIMONIL TABLETS [Concomitant]
  3. FORTECORTIN TABLETS [Concomitant]

REACTIONS (1)
  - GENERALISED OEDEMA [None]
